FAERS Safety Report 23574922 (Version 2)
Quarter: 2024Q1

REPORT INFORMATION
  Report Type: Report from Study
  Country: US (occurrence: None)
  Receive Date: 20240228
  Receipt Date: 20240308
  Transmission Date: 20240410
  Serious: Yes (Hospitalization, Other)
  Sender: FDA-Public Use
  Company Number: 2024A045222

PATIENT
  Age: 26398 Day
  Sex: Male
  Weight: 90.7 kg

DRUGS (9)
  1. TEZSPIRE [Suspect]
     Active Substance: TEZEPELUMAB-EKKO
     Indication: Asthma
     Route: 058
     Dates: start: 20230725
  2. ALBUTEROL [Concomitant]
     Active Substance: ALBUTEROL
     Dosage: 2.5 MG/0.5 ML NEBULIZER SOLUTION
  3. ATROVENT [Concomitant]
     Active Substance: IPRATROPIUM BROMIDE
     Dosage: 0.2% NEBULIZER SOLUTION
  4. ROCEPHIN [Concomitant]
     Active Substance: CEFTRIAXONE SODIUM
     Dosage: 2 GM IN SODIUM CHLORIDE 100 ML IVBP-MBP
  5. DECADRON [Concomitant]
     Active Substance: DEXAMETHASONE
     Dosage: 10 MG
  6. APRESOLINE HYDROCHLORIDE [Concomitant]
     Active Substance: HYDRALAZINE HYDROCHLORIDE
  7. MELATONIN [Concomitant]
     Active Substance: MELATONIN
  8. METHOCARBAMOL [Concomitant]
     Active Substance: METHOCARBAMOL
     Dates: start: 20231211
  9. MONTELUKAST [Concomitant]
     Active Substance: MONTELUKAST SODIUM
     Dates: start: 20190318

REACTIONS (18)
  - Pulmonary embolism [Unknown]
  - Dyspnoea exertional [Unknown]
  - Cough [Unknown]
  - Wheezing [Unknown]
  - Breath sounds abnormal [Unknown]
  - Respiratory distress [Unknown]
  - Tachypnoea [Unknown]
  - Chronic obstructive pulmonary disease [Unknown]
  - Tracheomalacia [Unknown]
  - Urinary tract infection [Unknown]
  - Haematuria [Unknown]
  - Pollakiuria [Unknown]
  - Headache [Unknown]
  - Anaemia [Unknown]
  - Mastoid disorder [Unknown]
  - Ear disorder [Unknown]
  - Dyspnoea [Unknown]
  - Abdominal distension [Unknown]

NARRATIVE: CASE EVENT DATE: 20240209
